FAERS Safety Report 24451953 (Version 1)
Quarter: 2024Q4

REPORT INFORMATION
  Report Type: Spontaneous
  Country: AU (occurrence: AU)
  Receive Date: 20241017
  Receipt Date: 20241017
  Transmission Date: 20250115
  Serious: Yes (Hospitalization, Disabling)
  Sender: GLAXOSMITHKLINE
  Company Number: AU-GSK-AU2024125093

PATIENT

DRUGS (1)
  1. VENTOLIN [Suspect]
     Active Substance: ALBUTEROL SULFATE
     Indication: Asthma
     Dosage: UNK

REACTIONS (3)
  - Asthma [Recovered/Resolved]
  - Complication of pregnancy [Unknown]
  - Exposure during pregnancy [Unknown]
